APPROVED DRUG PRODUCT: FLECAINIDE ACETATE
Active Ingredient: FLECAINIDE ACETATE
Strength: 50MG
Dosage Form/Route: TABLET;ORAL
Application: A202821 | Product #001 | TE Code: AB
Applicant: AUROBINDO PHARMA LTD
Approved: Nov 3, 2017 | RLD: No | RS: No | Type: RX